FAERS Safety Report 15037890 (Version 1)
Quarter: 2018Q2

REPORT INFORMATION
  Report Type: Spontaneous
  Country: IE (occurrence: IE)
  Receive Date: 20180620
  Receipt Date: 20180620
  Transmission Date: 20180711
  Serious: Yes (Other)
  Sender: FDA-Public Use
  Company Number: IE-BAUSCH-BL-2018-017082

PATIENT
  Age: 87 Year
  Sex: Female

DRUGS (3)
  1. GENTAMICIN. [Suspect]
     Active Substance: GENTAMICIN
     Indication: EVIDENCE BASED TREATMENT
     Route: 065
  2. RIFAMPICIN [Suspect]
     Active Substance: RIFAMPIN
     Indication: EVIDENCE BASED TREATMENT
     Route: 065
  3. VANCOMYCIN [Suspect]
     Active Substance: VANCOMYCIN
     Indication: EVIDENCE BASED TREATMENT
     Route: 065

REACTIONS (1)
  - Acute kidney injury [Recovered/Resolved]
